FAERS Safety Report 5140039-4 (Version None)
Quarter: 2006Q4

REPORT INFORMATION
  Report Type: 
  Country: None (occurrence: None)
  Receive Date: 20061031
  Receipt Date: 20061023
  Transmission Date: 20070319
  Serious: Yes (Death)
  Sender: FDA-Public Use
  Company Number: PL-BAYER-200614998GDS

PATIENT

DRUGS (1)
  1. APROTININ [Suspect]
     Indication: CORONARY ARTERY BYPASS
     Dosage: AS USED: 6500000 KIU
     Route: 065

REACTIONS (1)
  - CORONARY ARTERY THROMBOSIS [None]
